FAERS Safety Report 5751073-5 (Version None)
Quarter: 2008Q2

REPORT INFORMATION
  Report Type: 
  Country: None (occurrence: None)
  Receive Date: 20080527
  Receipt Date: 20080220
  Transmission Date: 20081010
  Serious: No
  Sender: FDA-Public Use
  Company Number: 2008SP003784

PATIENT
  Age: 75 Year
  Sex: Female

DRUGS (4)
  1. NOXAFIL [Suspect]
     Indication: ASPERGILLOSIS
     Dosage: 400 MG;BID;PO
     Route: 048
  2. PROGRAF [Concomitant]
  3. VALCYTE [Concomitant]
  4. PROCRIT [Concomitant]

REACTIONS (3)
  - FATIGUE [None]
  - HYPERSOMNIA [None]
  - LETHARGY [None]
